FAERS Safety Report 9369641 (Version 1)
Quarter: 2013Q2

REPORT INFORMATION
  Report Type: Spontaneous
  Country: US (occurrence: None)
  Receive Date: 20130625
  Receipt Date: 20130625
  Transmission Date: 20140414
  Serious: Yes (Disabling, Other)
  Sender: FDA-Public Use
  Company Number: None

PATIENT
  Age: 17 Year
  Sex: Male
  Weight: 92.99 kg

DRUGS (2)
  1. INDOMETHACIN ER [Suspect]
     Indication: TENDONITIS
     Route: 048
     Dates: start: 20130111, end: 20130209
  2. SINGULAIR [Concomitant]

REACTIONS (3)
  - Convulsion [None]
  - Respiration abnormal [None]
  - Gait disturbance [None]
